FAERS Safety Report 12699517 (Version 2)
Quarter: 2016Q3

REPORT INFORMATION
  Report Type: Spontaneous
  Country: IN (occurrence: IN)
  Receive Date: 20160830
  Receipt Date: 20160831
  Transmission Date: 20161109
  Serious: Yes (Other)
  Sender: FDA-Public Use
  Company Number: IN-JUBILANT CADISTA PHARMACEUTICALS-2016JUB00316

PATIENT
  Age: 49 Year
  Sex: Male

DRUGS (2)
  1. CETIRIZINE [Suspect]
     Active Substance: CETIRIZINE HYDROCHLORIDE
     Indication: ACARODERMATITIS
     Dosage: UNK
     Route: 048
  2. PERMETHRIN. [Concomitant]
     Active Substance: PERMETHRIN
     Indication: ACARODERMATITIS
     Route: 061

REACTIONS (1)
  - Dermatitis bullous [Recovered/Resolved]
